FAERS Safety Report 7817553-3 (Version None)
Quarter: 2011Q4

REPORT INFORMATION
  Report Type: 
  Country: None (occurrence: None)
  Receive Date: 20111017
  Receipt Date: 20111011
  Transmission Date: 20120403
  Serious: Yes (Death, Life-Threatening, Hospitalization)
  Sender: FDA-Public Use
  Company Number: US-JNJFOC-20111005064

PATIENT
  Age: 41 Year
  Sex: Female

DRUGS (3)
  1. UNKNOWN MEDICATION [Concomitant]
     Route: 065
  2. ANTICONVULSANT [Suspect]
     Indication: PRODUCT USED FOR UNKNOWN INDICATION
     Route: 048
  3. ULTRAM [Suspect]
     Indication: PRODUCT USED FOR UNKNOWN INDICATION
     Route: 065

REACTIONS (15)
  - MULTIPLE DRUG OVERDOSE [None]
  - PROTEIN URINE PRESENT [None]
  - ACIDOSIS [None]
  - RESPIRATORY ARREST [None]
  - BLOOD CREATININE INCREASED [None]
  - NAUSEA [None]
  - TACHYCARDIA [None]
  - HYPERGLYCAEMIA [None]
  - TACHYPNOEA [None]
  - VOMITING [None]
  - UNRESPONSIVE TO STIMULI [None]
  - CARDIAC ARREST [None]
  - DYSPNOEA [None]
  - BLOOD URINE PRESENT [None]
  - AMMONIA INCREASED [None]
